FAERS Safety Report 7714678-8 (Version None)
Quarter: 2011Q3

REPORT INFORMATION
  Report Type: 
  Country: None (occurrence: None)
  Receive Date: 20110822
  Receipt Date: 20110804
  Transmission Date: 20111222
  Serious: Yes (Death, Other)
  Sender: FDA-Public Use
  Company Number: 2011MA011476

PATIENT
  Age: 35 Year

DRUGS (5)
  1. IBUPROFEN [Suspect]
  2. ACETAMINOPHEN [Suspect]
  3. METHAMPHETAMINE HYDROCHLORIDE [Suspect]
  4. METHADONE HCL [Suspect]
     Dosage: 0.5 MG/L
  5. CODEINE SULFATE [Suspect]

REACTIONS (5)
  - PNEUMONIA [None]
  - MULTIPLE DRUG OVERDOSE [None]
  - PULMONARY OEDEMA [None]
  - ARRHYTHMIA [None]
  - TOXICITY TO VARIOUS AGENTS [None]
